FAERS Safety Report 12583641 (Version 2)
Quarter: 2016Q3

REPORT INFORMATION
  Report Type: Spontaneous
  Country: US (occurrence: US)
  Receive Date: 20160722
  Receipt Date: 20160830
  Transmission Date: 20161109
  Serious: Yes (Hospitalization, Other)
  Sender: FDA-Public Use
  Company Number: US-UCBSA-2016027051

PATIENT
  Age: 43 Year
  Sex: Female
  Weight: 73 kg

DRUGS (7)
  1. WARFARIN [Concomitant]
     Active Substance: WARFARIN
     Indication: PRODUCT USED FOR UNKNOWN INDICATION
  2. LASIX [Suspect]
     Active Substance: FUROSEMIDE
     Indication: OEDEMA
     Dosage: INCREASED DOSE
  3. METOLAZONE. [Suspect]
     Active Substance: METOLAZONE
     Indication: OEDEMA
     Dosage: UNK
  4. METOLAZONE. [Suspect]
     Active Substance: METOLAZONE
     Indication: FLUID RETENTION
  5. REMODULIN [Suspect]
     Active Substance: TREPROSTINIL
     Dosage: DOSAGE WAS DECREASED FROM 20 NG/KG/MIN TO 14 NG/KG/MIN
     Route: 058
     Dates: start: 20160617
  6. REMODULIN [Suspect]
     Active Substance: TREPROSTINIL
     Indication: PULMONARY ARTERIAL HYPERTENSION
     Dosage: 20 NG/KG/MIN, (2.5MG/ML),
     Route: 058
     Dates: start: 20160318, end: 2016
  7. LASIX [Suspect]
     Active Substance: FUROSEMIDE
     Indication: FLUID RETENTION
     Dosage: UNK

REACTIONS (7)
  - Ascites [Unknown]
  - Hypokalaemia [Recovered/Resolved]
  - Electrolyte imbalance [Unknown]
  - Lung disorder [Unknown]
  - Cardiac failure congestive [Not Recovered/Not Resolved]
  - Intestinal obstruction [Recovered/Resolved]
  - Pulmonary arterial hypertension [Unknown]

NARRATIVE: CASE EVENT DATE: 2016
